FAERS Safety Report 11690975 (Version 1)
Quarter: 2015Q4

REPORT INFORMATION
  Report Type: Spontaneous
  Country: JP (occurrence: JP)
  Receive Date: 20151102
  Receipt Date: 20151102
  Transmission Date: 20160304
  Serious: Yes (Other)
  Sender: FDA-Public Use
  Company Number: JP-AKORN PHARMACEUTICALS-2015AKN00637

PATIENT
  Age: 62 Year
  Sex: Female

DRUGS (2)
  1. ZIOPTAN [Suspect]
     Active Substance: TAFLUPROST
     Indication: GLAUCOMA
     Dosage: 1 GTT, SINGLE OU
     Route: 047
     Dates: start: 20130828, end: 20150826
  2. VEGAMOX [Concomitant]
     Active Substance: MOXIFLOXACIN HYDROCHLORIDE
     Dosage: UNK
     Route: 047

REACTIONS (4)
  - Abdominal discomfort [None]
  - Nasopharyngitis [Recovered/Resolved]
  - Visual field tests abnormal [Recovered/Resolved]
  - Retinal tear [None]

NARRATIVE: CASE EVENT DATE: 20141219
